FAERS Safety Report 13718639 (Version 2)
Quarter: 2017Q3

REPORT INFORMATION
  Report Type: Report from Study
  Country: US (occurrence: US)
  Receive Date: 20170705
  Receipt Date: 20170705
  Transmission Date: 20171127
  Serious: Yes (Hospitalization)
  Sender: FDA-Public Use
  Company Number: US-JNJFOC-20170602610

PATIENT
  Age: 24 Year
  Sex: Male

DRUGS (2)
  1. UCERIS [Concomitant]
     Active Substance: BUDESONIDE
     Indication: COLITIS
     Route: 048
  2. REMICADE [Suspect]
     Active Substance: INFLIXIMAB
     Indication: COLITIS
     Route: 042

REACTIONS (3)
  - Colitis [Recovered/Resolved]
  - Drug resistance [Recovered/Resolved]
  - Drug specific antibody present [Unknown]

NARRATIVE: CASE EVENT DATE: 20170531
